FAERS Safety Report 10187249 (Version 2)
Quarter: 2014Q2

REPORT INFORMATION
  Report Type: Report from Study
  Country: DE (occurrence: DE)
  Receive Date: 20140522
  Receipt Date: 20140522
  Transmission Date: 20141212
  Serious: Yes (Hospitalization)
  Sender: FDA-Public Use
  Company Number: PHHY2014DE039381

PATIENT
  Sex: Female
  Weight: 82 kg

DRUGS (8)
  1. AMN107 [Suspect]
     Indication: CHRONIC MYELOID LEUKAEMIA
     Dosage: 600 MG, PER DAY
     Route: 048
     Dates: start: 20131121
  2. GLIMEPIRIDE [Concomitant]
     Indication: DIABETES MELLITUS
     Dosage: 1 MG, QD
     Dates: start: 20040101
  3. RAMIPRIL [Concomitant]
     Indication: HYPERTENSION
     Dosage: 5 MG, BID
     Dates: start: 20130904, end: 20140131
  4. IBUPROFEN [Concomitant]
     Indication: SPINAL PAIN
     Dosage: 600 MG, BID
     Route: 048
     Dates: start: 20130901
  5. NITRENDIPINE [Concomitant]
     Indication: HYPERTENSION
     Dosage: 20 MG, BID
     Route: 048
     Dates: start: 20040101
  6. ALLOPURINOL [Concomitant]
     Indication: HYPERURICAEMIA
     Dosage: 150 MG, QD
     Dates: start: 20130901
  7. VELMETIA [Concomitant]
     Indication: DIABETES MELLITUS
     Dosage: 1 DF, QD
     Dates: start: 20130304
  8. FUROSEMIDE [Concomitant]
     Indication: OEDEMA PERIPHERAL
     Dosage: 40 MG, QD
     Route: 048
     Dates: start: 20131224

REACTIONS (1)
  - Bronchopneumonia [Recovered/Resolved]
